FAERS Safety Report 5042163-3 (Version None)
Quarter: 2006Q2

REPORT INFORMATION
  Report Type: 
  Country: None (occurrence: None)
  Receive Date: 20060627
  Receipt Date: 20060619
  Transmission Date: 20061013
  Serious: Yes (Death)
  Sender: FDA-Public Use
  Company Number: HQWYE280720JUN06

PATIENT
  Age: 55 Year
  Sex: Male
  Weight: 98 kg

DRUGS (3)
  1. MYLOTARG [Suspect]
     Indication: ACUTE MYELOID LEUKAEMIA
     Dosage: 13 MG 1X PER 1 DAY
     Dates: start: 20060608, end: 20060608
  2. CYTARABINE [Suspect]
     Indication: ACUTE MYELOID LEUKAEMIA
     Dosage: TOTAL DOSE 1540 MG
     Dates: start: 20060605, end: 20060611
  3. DAUNORUBICIN HCL [Suspect]
     Indication: ACUTE MYELOID LEUKAEMIA
     Dosage: TOTAL DOSE 288 MG
     Dates: start: 20060605, end: 20060607

REACTIONS (7)
  - ACUTE RESPIRATORY DISTRESS SYNDROME [None]
  - CEREBRAL HAEMORRHAGE [None]
  - PHYSICAL EXAMINATION ABNORMAL [None]
  - PLATELET COUNT DECREASED [None]
  - PULMONARY HAEMORRHAGE [None]
  - RESPIRATORY TRACT HAEMORRHAGE [None]
  - SUBARACHNOID HAEMORRHAGE [None]
